FAERS Safety Report 16942221 (Version 2)
Quarter: 2020Q2

REPORT INFORMATION
  Report Type: Report from Study
  Country: US (occurrence: US)
  Receive Date: 20191021
  Receipt Date: 20200611
  Transmission Date: 20200713
  Serious: Yes (Other)
  Sender: FDA-Public Use
  Company Number: US-SA-2019SA264863

PATIENT

DRUGS (4)
  1. DUPILUMAB [Suspect]
     Active Substance: DUPILUMAB
     Indication: ASTHMA
     Dosage: 600 MG, 1X
     Route: 058
     Dates: start: 20190903, end: 20190903
  2. DUPILUMAB [Suspect]
     Active Substance: DUPILUMAB
     Dosage: 300 MG, QOW
     Route: 058
     Dates: start: 201909
  3. DUPILUMAB [Suspect]
     Active Substance: DUPILUMAB
     Dosage: 300 MG, QOW
     Route: 058
     Dates: start: 201910
  4. DUPILUMAB [Suspect]
     Active Substance: DUPILUMAB
     Dosage: N/A, OTHER
     Route: 058
     Dates: start: 20200201

REACTIONS (7)
  - Fracture [Unknown]
  - Product use issue [Unknown]
  - Dyspnoea [Unknown]
  - Product dose omission [Unknown]
  - Product use issue [Unknown]
  - Loss of consciousness [Unknown]
  - Cough [Not Recovered/Not Resolved]

NARRATIVE: CASE EVENT DATE: 20190903
